FAERS Safety Report 9127680 (Version 1)
Quarter: 2013Q1

REPORT INFORMATION
  Report Type: Not Available
  Country: FR (occurrence: FR)
  Receive Date: 20130228
  Receipt Date: 20130228
  Transmission Date: 20140127
  Serious: Yes (Death, Hospitalization)
  Sender: FDA-Public Use
  Company Number: FR-ASTELLAS-2013EU001756

PATIENT
  Age: 30 Year
  Sex: Female

DRUGS (9)
  1. PROGRAF [Suspect]
     Indication: BONE MARROW TRANSPLANT
     Dosage: 2 MG, BID
     Route: 048
     Dates: start: 20121019
  2. VISTIDE [Suspect]
     Indication: VIRAL HAEMORRHAGIC CYSTITIS
     Dosage: UNK MG, UNKNOWN/D
     Route: 042
     Dates: start: 20120927, end: 20121026
  3. VISTIDE [Suspect]
     Dosage: 450 MG, TID
     Route: 043
     Dates: start: 20121027, end: 20121030
  4. ROVALCYTE [Suspect]
     Dosage: 1350 MG, UID/QD
     Route: 048
     Dates: start: 20121029
  5. ROVALCYTE [Suspect]
     Dosage: 450 MG, UID/QD
     Route: 048
     Dates: start: 20121031, end: 20121110
  6. FOSCAVIR [Suspect]
     Dosage: 6 G, UID/QD
     Route: 042
     Dates: start: 20121018
  7. TAVANIC [Suspect]
     Dosage: 500 MG, UID/QD
     Route: 048
     Dates: start: 20121029, end: 20121104
  8. CELLCEPT                           /01275102/ [Suspect]
     Indication: BONE MARROW TRANSPLANT
     Dosage: 2 G, UID/QD
     Route: 048
     Dates: start: 20121029, end: 20121030
  9. CELLCEPT                           /01275102/ [Suspect]
     Dosage: 2 G, UID/QD
     Route: 042
     Dates: end: 20121107

REACTIONS (1)
  - Renal failure acute [Fatal]
